FAERS Safety Report 4504519-4 (Version None)
Quarter: 2004Q4

REPORT INFORMATION
  Report Type: 
  Country: None (occurrence: None)
  Receive Date: 20041118
  Receipt Date: 20041111
  Transmission Date: 20050328
  Serious: Yes (Hospitalization)
  Sender: FDA-Public Use
  Company Number: DE-BRISTOL-MYERS SQUIBB COMPANY-12763884

PATIENT
  Age: 71 Year
  Sex: Female
  Weight: 69 kg

DRUGS (7)
  1. TAXOL [Suspect]
     Indication: OVARIAN CANCER
     Dosage: 1ST CYCLE: 02SEP03
     Dates: start: 20030930, end: 20030930
  2. RIBOCARBO [Suspect]
     Indication: OVARIAN CANCER
     Dosage: 1ST CYCLE: 02SEP03
     Dates: start: 20030930, end: 20030930
  3. GEMZAR [Suspect]
     Indication: OVARIAN CANCER
     Dosage: 1ST CYCLE: 02SEP03
     Dates: start: 20030930, end: 20030930
  4. DEXAMETHASONE [Concomitant]
     Indication: PREMEDICATION
     Dates: start: 20030930, end: 20030930
  5. NAVOBAN [Concomitant]
     Indication: PREMEDICATION
     Dates: start: 20030930, end: 20030930
  6. FENISTIL [Concomitant]
     Indication: PREMEDICATION
     Dates: start: 20030930, end: 20030930
  7. SOSTRIL [Concomitant]
     Indication: PREMEDICATION
     Dates: start: 20030930, end: 20030930

REACTIONS (1)
  - INJECTION SITE PAIN [None]
